FAERS Safety Report 12271955 (Version 1)
Quarter: 2016Q2

REPORT INFORMATION
  Report Type: Spontaneous
  Country: US (occurrence: US)
  Receive Date: 20160415
  Receipt Date: 20160415
  Transmission Date: 20160815
  Serious: No
  Sender: FDA-Public Use
  Company Number: US-BAYER-2016-072035

PATIENT
  Age: 61 Year
  Sex: Male

DRUGS (1)
  1. CLIMARA [Suspect]
     Active Substance: ESTRADIOL
     Indication: TRANSGENDER HORMONAL THERAPY
     Route: 062

REACTIONS (3)
  - Product use issue [None]
  - Product adhesion issue [None]
  - Off label use [None]
